FAERS Safety Report 10725617 (Version 5)
Quarter: 2015Q1

REPORT INFORMATION
  Report Type: Spontaneous
  Country: CN (occurrence: CN)
  Receive Date: 20150121
  Receipt Date: 20150323
  Transmission Date: 20150721
  Serious: No
  Sender: FDA-Public Use
  Company Number: CN-009507513-1501CHN005407

PATIENT
  Age: 46 Year
  Sex: Female
  Weight: 56 kg

DRUGS (17)
  1. EMEND [Suspect]
     Active Substance: APREPITANT
     Indication: PROPHYLAXIS OF NAUSEA AND VOMITING
     Dosage: 125 MG, DAY 1
     Route: 048
     Dates: start: 20141030, end: 20141030
  2. ANASTROZOLE. [Concomitant]
     Active Substance: ANASTROZOLE
     Indication: BREAST CANCER
     Dosage: UNK
     Route: 048
     Dates: start: 20131205
  3. POLYENEPHOSPHATIDYL CHOLINE [Concomitant]
     Indication: PROPHYLAXIS
     Dosage: 465 MG, QD
     Route: 041
     Dates: start: 20141030, end: 20141107
  4. PHENERGAN (DIBROMPROPAMIDINE ISETHIONATE (+) PROMETHAZINE) [Concomitant]
     Indication: PROPHYLAXIS OF NAUSEA AND VOMITING
     Dosage: 25 MG, QD
     Route: 030
     Dates: start: 20141030, end: 20141102
  5. FUROSEMIDE. [Concomitant]
     Active Substance: FUROSEMIDE
     Indication: PROPHYLAXIS
     Dosage: 20 MG, QD
     Route: 042
     Dates: start: 20141030, end: 20141102
  6. RINGERS LACTATE MACO PHARMA [Concomitant]
     Indication: PROPHYLAXIS
     Dosage: TOTAL DAILY DOSE: 500 ML/CC, QD
     Route: 041
     Dates: start: 20141030, end: 20141102
  7. DEXAMETHASONE SODIUM PHOSPHATE. [Concomitant]
     Active Substance: DEXAMETHASONE SODIUM PHOSPHATE
     Dosage: 5 MG, ONCE
     Route: 041
     Dates: start: 20141030, end: 20141030
  8. EMEND [Suspect]
     Active Substance: APREPITANT
     Dosage: 80 MG, QD (DAY 2 AND 3)
     Route: 048
     Dates: start: 20141031, end: 20141101
  9. DIISOPROPYLAMINE DICHLOROACETATE [Concomitant]
     Indication: PROPHYLAXIS
     Dosage: 160 MG, QD
     Route: 041
     Dates: start: 20141030, end: 20141107
  10. DEXAMETHASONE SODIUM PHOSPHATE. [Concomitant]
     Active Substance: DEXAMETHASONE SODIUM PHOSPHATE
     Indication: PROPHYLAXIS OF NAUSEA AND VOMITING
     Dosage: 10 MG, QD
     Route: 042
     Dates: start: 20141030, end: 20141102
  11. GEMCITABINE [Concomitant]
     Active Substance: GEMCITABINE\GEMCITABINE HYDROCHLORIDE
     Indication: CHEMOTHERAPY
     Dosage: DOSE: 1.53 G/D1 TREATMENT REGIMEN:GP, TREATMENT CYCLE: 1
     Route: 041
     Dates: start: 20141030, end: 20141030
  12. CISPLATIN. [Concomitant]
     Active Substance: CISPLATIN
     Dosage: DOSE: 115 MG/D1,TREATMENT REGIMEN:GP, TREATMENT CYCLE: 1
     Route: 041
     Dates: start: 20141030, end: 20141030
  13. OMEPRAZOLE. [Concomitant]
     Active Substance: OMEPRAZOLE
     Indication: PROPHYLAXIS
     Dosage: 40 MG, QD
     Route: 042
     Dates: start: 20141030, end: 20141102
  14. POTASSIUM CHLORIDE. [Concomitant]
     Active Substance: POTASSIUM CHLORIDE
     Indication: PROPHYLAXIS
     Dosage: 0.75 G, QD
     Route: 041
     Dates: start: 20141030, end: 20141102
  15. PALONOSETRON HYDROCHLORIDE [Concomitant]
     Active Substance: PALONOSETRON HYDROCHLORIDE
     Indication: PROPHYLAXIS OF NAUSEA AND VOMITING
     Dosage: 0.25 MG, QOD
     Route: 041
     Dates: start: 20141030, end: 20141102
  16. CARBOHYDRATES (UNSPECIFIED) (+) ELECTROLYTES (UNSPECIFIED) [Concomitant]
     Indication: PROPHYLAXIS
     Dosage: TOTAL DAILY DOSE: 1000 ML/CC,QD
     Route: 041
     Dates: start: 20141030, end: 20141102
  17. MANNITOL. [Concomitant]
     Active Substance: MANNITOL
     Indication: PROPHYLAXIS
     Dosage: TOTAL DAILY DOSE: 250 ML/CC, ONCE
     Route: 041
     Dates: start: 20141030, end: 20141030

REACTIONS (3)
  - Neutrophil count decreased [Recovered/Resolved]
  - Hepatic function abnormal [Unknown]
  - White blood cell count decreased [Recovered/Resolved]

NARRATIVE: CASE EVENT DATE: 20141104
